FAERS Safety Report 16667367 (Version 2)
Quarter: 2019Q3

REPORT INFORMATION
  Report Type: Spontaneous
  Country: US (occurrence: US)
  Receive Date: 20190805
  Receipt Date: 20190925
  Transmission Date: 20191004
  Serious: Yes (Other)
  Sender: FDA-Public Use
  Company Number: US-PFIZER INC-2019329364

PATIENT
  Age: 63 Year
  Sex: Male

DRUGS (1)
  1. CAVERJECT IMPULSE [Suspect]
     Active Substance: ALPROSTADIL
     Dosage: 20 UG, ONCE (10-30 MINUTES BEFORE INTENDED INTERCOURSE)
     Route: 017
     Dates: start: 20190729

REACTIONS (2)
  - Agitation [Unknown]
  - Prostate cancer [Unknown]
